FAERS Safety Report 4683718-5 (Version None)
Quarter: 2005Q2

REPORT INFORMATION
  Report Type: 
  Country: None (occurrence: None)
  Receive Date: 20050607
  Receipt Date: 20050531
  Transmission Date: 20051028
  Serious: Yes (Other)
  Sender: FDA-Public Use
  Company Number: US-BRISTOL-MYERS SQUIBB COMPANY-12986774

PATIENT
  Age: 50 Year
  Sex: Male
  Weight: 101 kg

DRUGS (3)
  1. ERBITUX [Suspect]
     Indication: COLON CANCER
     Dosage: LOAD DOSE 800 MG 07-JAN-05, REC'D ON 28-JAN, 11-FEB, 26-MAR, 08, 15, 22 + 29-APR-05.
     Route: 042
     Dates: start: 20050211, end: 20050211
  2. IRINOTECAN [Concomitant]
     Dosage: GIVEN 200 MG, TWO WEEKS ON AND THEN ONE WEEK OFF.
     Dates: start: 20050101, end: 20050101
  3. BENADRYL [Concomitant]
     Indication: PREMEDICATION
     Dates: start: 20050101, end: 20050101

REACTIONS (2)
  - HERPES ZOSTER [None]
  - RASH PUSTULAR [None]
